FAERS Safety Report 8014402-8 (Version None)
Quarter: 2011Q4

REPORT INFORMATION
  Report Type: 
  Country: None (occurrence: None)
  Receive Date: 20111229
  Receipt Date: 20111216
  Transmission Date: 20120403
  Serious: Yes (Hospitalization)
  Sender: FDA-Public Use
  Company Number: SE-ELI_LILLY_AND_COMPANY-SE201111001546

PATIENT
  Age: 43 Year
  Sex: Male

DRUGS (5)
  1. SEROQUEL [Concomitant]
     Dosage: UNK, UNKNOWN
     Route: 065
  2. PROPAVAN [Concomitant]
     Dosage: 25 MG, UNKNOWN
     Route: 065
  3. ZOPIKLON [Concomitant]
     Dosage: UNK, UNKNOWN
     Route: 065
  4. OLANZAPINE [Suspect]
     Indication: SCHIZOPHRENIA
     Dosage: 300 MG, UNKNOWN
     Route: 030
     Dates: start: 20110101
  5. FLUOXETINE HCL [Concomitant]
     Dosage: UNK, UNKNOWN
     Route: 065

REACTIONS (1)
  - ABSCESS [None]
